FAERS Safety Report 7903775-X (Version None)
Quarter: 2011Q4

REPORT INFORMATION
  Report Type: 
  Country: None (occurrence: None)
  Receive Date: 20111109
  Receipt Date: 20111102
  Transmission Date: 20120403
  Serious: Yes (Hospitalization)
  Sender: FDA-Public Use
  Company Number: JP-ROCHE-799092

PATIENT
  Sex: Female

DRUGS (15)
  1. METHOTREXATE [Concomitant]
     Route: 048
  2. PROPYLTHIOURACIL [Concomitant]
     Route: 048
  3. ACTEMRA [Suspect]
     Indication: RHEUMATOID ARTHRITIS
     Route: 041
     Dates: start: 20080630, end: 20081202
  4. ACTEMRA [Suspect]
     Route: 041
     Dates: start: 20090105, end: 20090330
  5. METHOTREXATE [Concomitant]
     Route: 048
     Dates: start: 20080324, end: 20080427
  6. ACTEMRA [Suspect]
     Route: 041
     Dates: start: 20090525, end: 20090525
  7. ACTEMRA [Suspect]
     Route: 041
     Dates: start: 20090713, end: 20090713
  8. PROPYLTHIOURACIL [Concomitant]
     Route: 048
  9. LANSOPRAZOLE [Concomitant]
     Route: 048
  10. METHOTREXATE [Concomitant]
     Route: 048
     Dates: start: 20080905, end: 20081006
  11. PREDNISOLONE [Concomitant]
     Route: 048
  12. PREDNISOLONE [Concomitant]
     Route: 048
     Dates: start: 20080904, end: 20081202
  13. ACTEMRA [Suspect]
     Route: 041
     Dates: start: 20091005, end: 20100324
  14. ACTEMRA [Suspect]
     Route: 041
     Dates: start: 20100628, end: 20100825
  15. METHOTREXATE [Concomitant]
     Route: 048
     Dates: start: 20080428, end: 20080904

REACTIONS (1)
  - POLYARTERITIS NODOSA [None]
